FAERS Safety Report 7292454-0 (Version None)
Quarter: 2011Q1

REPORT INFORMATION
  Report Type: 
  Country: None (occurrence: None)
  Receive Date: 20110215
  Receipt Date: 20110211
  Transmission Date: 20110831
  Serious: No
  Sender: FDA-Public Use
  Company Number: US-PFIZER INC-2011031526

PATIENT
  Sex: Female
  Weight: 31 kg

DRUGS (1)
  1. ADVIL CONGESTION RELIEF [Suspect]
     Indication: SINUS DISORDER
     Dosage: 200 MG, 1X/DAY
     Route: 048
     Dates: start: 20110204, end: 20110206

REACTIONS (1)
  - MALAISE [None]
